FAERS Safety Report 18054691 (Version 1)
Quarter: 2020Q3

REPORT INFORMATION
  Report Type: Spontaneous
  Country: US (occurrence: US)
  Receive Date: 20200722
  Receipt Date: 20200722
  Transmission Date: 20201103
  Serious: No
  Sender: FDA-Public Use
  Company Number: None

PATIENT
  Sex: Male

DRUGS (1)
  1. EQUATE CHILDREN^S HOMEOPATHIC DAYTIME COLD + COUGH LIQUID AGES 2 TO 12 [Suspect]
     Active Substance: HOMEOPATHICS

REACTIONS (3)
  - Fear [None]
  - Hallucination [None]
  - Pruritus [None]

NARRATIVE: CASE EVENT DATE: 20200430
